FAERS Safety Report 17366509 (Version 9)
Quarter: 2022Q2

REPORT INFORMATION
  Report Type: Spontaneous
  Country: US (occurrence: US)
  Receive Date: 20200204
  Receipt Date: 20220613
  Transmission Date: 20220721
  Serious: No
  Sender: FDA-Public Use
  Company Number: US-PFIZER INC-2020045056

PATIENT
  Age: 42 Year
  Sex: Female
  Weight: 46.712 kg

DRUGS (6)
  1. NARDIL [Suspect]
     Active Substance: PHENELZINE SULFATE
     Indication: Depression
     Dosage: 3 DF, DAILY
     Dates: start: 1989
  2. NARDIL [Suspect]
     Active Substance: PHENELZINE SULFATE
     Indication: Major depression
     Dosage: (30MG MORNING, 15MG EVENING, MAINTENANCE DOSE)
     Dates: start: 198910
  3. NARDIL [Suspect]
     Active Substance: PHENELZINE SULFATE
     Dosage: 15 MG (2 PO (PER ORAL) Q (EVERY)AM + 1PO (PER ORAL) Q (EVERY) NOON)
  4. LITHIUM [Concomitant]
     Active Substance: LITHIUM
     Indication: Mood altered
     Dosage: 600 MG, DAILY
     Route: 048
     Dates: start: 198909, end: 1989
  5. LITHOBID [Concomitant]
     Active Substance: LITHIUM CARBONATE
     Dosage: UNK
     Dates: start: 198907
  6. LITHOBID [Concomitant]
     Active Substance: LITHIUM CARBONATE
     Dosage: UNK
     Dates: start: 198910

REACTIONS (7)
  - Abdominal discomfort [Recovered/Resolved]
  - Constipation [Recovered/Resolved]
  - Abdominal distension [Recovered/Resolved]
  - Abdominal pain [Recovered/Resolved]
  - Feeling abnormal [Unknown]
  - Electric shock sensation [Recovered/Resolved]
  - Head discomfort [Recovered/Resolved]

NARRATIVE: CASE EVENT DATE: 19890101
